FAERS Safety Report 5509102-X (Version None)
Quarter: 2007Q4

REPORT INFORMATION
  Report Type: 
  Country: None (occurrence: None)
  Receive Date: 20071026
  Receipt Date: 20070801
  Transmission Date: 20080405
  Serious: Yes (Hospitalization)
  Sender: FDA-Public Use
  Company Number: CLOF-10632

PATIENT
  Age: 82 Year
  Sex: Female

DRUGS (1)
  1. CLOFARABINE. MFR: GENZYME [Suspect]
     Indication: LYMPHOMA
     Dates: start: 20070709

REACTIONS (4)
  - ANAEMIA [None]
  - FEBRILE NEUTROPENIA [None]
  - LEUKOPENIA [None]
  - THROMBOCYTOPENIA [None]
